FAERS Safety Report 12667771 (Version 1)
Quarter: 2016Q3

REPORT INFORMATION
  Report Type: Spontaneous
  Country: US (occurrence: US)
  Receive Date: 20160819
  Receipt Date: 20160819
  Transmission Date: 20161109
  Serious: Yes (Death, Other)
  Sender: FDA-Public Use
  Company Number: US-MALLINCKRODT-T201603734

PATIENT
  Sex: Male

DRUGS (1)
  1. INOMAX [Suspect]
     Active Substance: NITRIC OXIDE
     Indication: OXYGEN SATURATION DECREASED
     Dosage: 20PPM
     Dates: start: 20160811, end: 20160811

REACTIONS (5)
  - Tachypnoea [Unknown]
  - Off label use [Unknown]
  - Cardiogenic shock [Fatal]
  - Dyspnoea [Unknown]
  - Drug ineffective for unapproved indication [Unknown]
